FAERS Safety Report 7461726-9 (Version None)
Quarter: 2011Q2

REPORT INFORMATION
  Report Type: 
  Country: None (occurrence: None)
  Receive Date: 20110506
  Receipt Date: 20110428
  Transmission Date: 20111010
  Serious: Yes (Other)
  Sender: FDA-Public Use
  Company Number: US-TYCO HEALTHCARE/MALLINCKRODT-T201100845

PATIENT
  Sex: Female

DRUGS (1)
  1. OPTIMARK [Suspect]
     Indication: NUCLEAR MAGNETIC RESONANCE IMAGING
     Dosage: 20 ML, SINGLE
     Route: 042
     Dates: start: 20110331, end: 20110331

REACTIONS (5)
  - THROAT TIGHTNESS [None]
  - RESPIRATORY DISTRESS [None]
  - SWOLLEN TONGUE [None]
  - COUGH [None]
  - MALAISE [None]
